FAERS Safety Report 9587412 (Version 4)
Quarter: 2013Q4

REPORT INFORMATION
  Report Type: Spontaneous
  Country: JP (occurrence: JP)
  Receive Date: 20131003
  Receipt Date: 20131018
  Transmission Date: 20140711
  Serious: Yes (Life-Threatening, Hospitalization, Other)
  Sender: FDA-Public Use
  Company Number: JP-ASTRAZENECA-2013SE72752

PATIENT
  Age: 67 Year
  Sex: Male

DRUGS (76)
  1. MEROPEN [Suspect]
     Indication: PANCREATITIS ACUTE
     Dosage: OVER 0.5-1 G/DAY
     Route: 042
     Dates: start: 20130912, end: 20130915
  2. GASTER [Suspect]
     Route: 042
     Dates: start: 20130824, end: 20130824
  3. GASTER [Suspect]
     Route: 042
     Dates: start: 20130906, end: 20130910
  4. OMEGACIN [Suspect]
     Route: 041
     Dates: start: 20130824, end: 20130902
  5. OMEGACIN [Suspect]
     Route: 041
     Dates: start: 20130903, end: 20130903
  6. NAFAMOSTAT MESILATE [Suspect]
     Route: 041
     Dates: start: 20130824, end: 20130904
  7. NAFAMOSTAT MESILATE [Suspect]
     Route: 041
     Dates: start: 20130824, end: 20130831
  8. NAFAMOSTAT MESILATE [Suspect]
     Route: 041
     Dates: start: 20130901, end: 20130907
  9. VEEN-F [Concomitant]
     Route: 041
     Dates: start: 20130824, end: 20130827
  10. VEEN-F [Concomitant]
     Route: 041
     Dates: start: 20130828, end: 20130915
  11. VEEN-F [Concomitant]
     Route: 041
     Dates: start: 20130916, end: 20130917
  12. VEEN-F [Concomitant]
     Route: 041
     Dates: start: 20130923, end: 20130924
  13. LEPETAN [Concomitant]
     Route: 042
     Dates: start: 20130824, end: 20130824
  14. LEPETAN [Concomitant]
     Route: 042
     Dates: start: 20130916, end: 20130916
  15. PRIMPERAN [Concomitant]
     Route: 042
     Dates: start: 20130824, end: 20130824
  16. PRIMPERAN [Concomitant]
     Route: 042
     Dates: start: 20130916, end: 20130916
  17. MIRACLID [Concomitant]
     Route: 042
     Dates: start: 20130824, end: 20130917
  18. NEOSTELIN GREEN [Concomitant]
     Dates: start: 20130824
  19. PROPETO [Concomitant]
     Dates: start: 20130824
  20. AZUNOL [Concomitant]
     Dates: start: 20130824
  21. BIOFERMIN [Concomitant]
     Route: 048
     Dates: start: 20130824, end: 20130825
  22. BIOFERMIN [Concomitant]
     Route: 048
     Dates: start: 20130906, end: 20130910
  23. BIOFERMIN [Concomitant]
     Route: 048
     Dates: start: 20130911, end: 20130924
  24. SUBLOOD-BSG [Concomitant]
     Route: 041
     Dates: start: 20130824, end: 20130830
  25. SUBLOOD-BSG [Concomitant]
     Route: 041
     Dates: start: 20130917, end: 20130921
  26. AMLODIN OD [Concomitant]
     Route: 048
     Dates: start: 20130824, end: 20130826
  27. HUMULIN R [Concomitant]
     Route: 041
     Dates: start: 20130905, end: 20130911
  28. HUMULIN R [Concomitant]
     Route: 041
     Dates: start: 20130912, end: 20130914
  29. HUMULIN R [Concomitant]
     Route: 041
     Dates: start: 20130916, end: 20130925
  30. ELASPOL [Concomitant]
     Route: 041
     Dates: start: 20130825, end: 20130907
  31. HANP [Concomitant]
     Route: 041
     Dates: start: 20130905, end: 20130911
  32. SLONNON HI [Concomitant]
     Route: 041
     Dates: start: 20130906, end: 20130907
  33. SLONNON HI [Concomitant]
     Route: 041
     Dates: start: 20130910, end: 20130911
  34. IRRADIATED RED CELLS CONCENTRATES-LEUKOCYTES REDUCED [Concomitant]
     Route: 042
     Dates: start: 20130907, end: 20130907
  35. IRRADIATED RED CELLS CONCENTRATES-LEUKOCYTES REDUCED [Concomitant]
     Route: 042
     Dates: start: 20130914, end: 20130914
  36. RISPERDAL [Concomitant]
     Route: 048
     Dates: start: 20130905
  37. POLYMIXIN B SULFATE [Concomitant]
     Route: 048
     Dates: start: 20130905, end: 20130910
  38. CALONAL [Concomitant]
     Route: 048
     Dates: start: 20130829
  39. CALONAL [Concomitant]
     Route: 048
     Dates: start: 20130921
  40. SALIVEHT [Concomitant]
     Dates: start: 20130827
  41. LOXONIN [Concomitant]
     Dates: start: 20130825
  42. PEMIROC [Concomitant]
     Route: 042
     Dates: start: 20130909, end: 20130920
  43. MAXIPIME [Concomitant]
     Route: 041
     Dates: start: 20130911, end: 20130911
  44. MAXIPIME [Concomitant]
     Route: 041
     Dates: start: 20130916, end: 20130916
  45. GRAN [Concomitant]
     Route: 058
     Dates: start: 20130911, end: 20130911
  46. GRAN [Concomitant]
     Route: 058
     Dates: start: 20130913, end: 20130920
  47. LIPACREON [Concomitant]
     Route: 048
     Dates: start: 20130911, end: 20130917
  48. RACOL-NF [Concomitant]
     Dates: start: 20130911, end: 20130911
  49. RACOL-NF [Concomitant]
     Dates: start: 20130912, end: 20130917
  50. POLARAMINE [Concomitant]
     Route: 042
     Dates: start: 20130914, end: 20130914
  51. ALPINY [Concomitant]
     Dates: start: 20130914
  52. ALPINY [Concomitant]
     Dates: start: 20130918
  53. LANTUS [Concomitant]
     Route: 058
     Dates: start: 20130914, end: 20130916
  54. LOWHEPA [Concomitant]
     Route: 041
     Dates: start: 20130912, end: 20130920
  55. FUNGUARD [Concomitant]
     Route: 041
     Dates: start: 20130913, end: 20130924
  56. DIPRIVAN [Concomitant]
     Route: 041
     Dates: start: 20130916, end: 20130917
  57. FENTANYL [Concomitant]
     Route: 041
     Dates: start: 20130916, end: 20130920
  58. HEPARIN SODIUM [Concomitant]
     Route: 041
     Dates: start: 20130916, end: 20130917
  59. SOLDEM 3A [Concomitant]
     Route: 041
     Dates: start: 20130915, end: 20130916
  60. BFLUID [Concomitant]
     Route: 042
     Dates: start: 20130916, end: 20130916
  61. ESLAX [Concomitant]
     Route: 042
     Dates: start: 20130916, end: 20130916
  62. DORMICUM [Concomitant]
     Route: 042
     Dates: start: 20130916, end: 20130916
  63. ALBUMINAR [Concomitant]
     Route: 042
     Dates: start: 20130916, end: 20130916
  64. PAZUCROSS [Concomitant]
     Route: 041
     Dates: start: 20130916, end: 20130924
  65. FLAGYL [Concomitant]
     Route: 048
     Dates: start: 20130916, end: 20130916
  66. FLAGYL [Concomitant]
     Route: 048
     Dates: start: 20130917, end: 20130917
  67. FLAGYL [Concomitant]
     Route: 048
     Dates: start: 20130918, end: 20130924
  68. FULCALIQ 3 [Concomitant]
     Route: 041
     Dates: start: 20130918, end: 20130925
  69. MUCODYNE DS [Concomitant]
     Route: 048
     Dates: start: 20130919, end: 20130921
  70. ARASENA-A [Concomitant]
     Dates: start: 20130920
  71. AMOBAN [Concomitant]
     Route: 048
     Dates: start: 20130919
  72. GLUCONSAN K [Concomitant]
     Route: 048
     Dates: start: 20130919, end: 20130921
  73. SOLDEM 1 [Concomitant]
     Route: 041
     Dates: start: 20130924, end: 20130925
  74. MAINTATE [Concomitant]
     Route: 048
     Dates: start: 20130923, end: 20130924
  75. EXCELASE [Concomitant]
     Route: 048
     Dates: start: 20130922, end: 20130924
  76. DAIKENCHUTO [Concomitant]
     Route: 048
     Dates: start: 20130906, end: 20130910

REACTIONS (3)
  - Renal impairment [Unknown]
  - Agranulocytosis [Recovered/Resolved]
  - Drug eruption [Recovered/Resolved]
